FAERS Safety Report 11077410 (Version 2)
Quarter: 2015Q2

REPORT INFORMATION
  Report Type: Spontaneous
  Country: US (occurrence: US)
  Receive Date: 20150430
  Receipt Date: 20150526
  Transmission Date: 20150821
  Serious: No
  Sender: FDA-Public Use
  Company Number: US-JNJFOC-20131107669

PATIENT

DRUGS (2)
  1. PLACEBO [Suspect]
     Active Substance: UNSPECIFIED INGREDIENT
     Indication: SCHIZOPHRENIA
     Route: 065
  2. GALANTAMINE HBR [Suspect]
     Active Substance: GALANTAMINE HYDROBROMIDE
     Indication: SCHIZOPHRENIA
     Dosage: GALANTAMINE 8 MG/D, THE DOSE WAS INCREASED BY 8-MG/D INCREMENTS EVERY??4 WEEKS
     Route: 048

REACTIONS (1)
  - Adverse drug reaction [Unknown]
